FAERS Safety Report 6693156-1 (Version None)
Quarter: 2010Q2

REPORT INFORMATION
  Report Type: 
  Country: None (occurrence: None)
  Receive Date: 20100421
  Receipt Date: 20100421
  Transmission Date: 20101027
  Serious: Yes (Other)
  Sender: FDA-Public Use
  Company Number: None

PATIENT
  Age: 60 Year
  Sex: Female
  Weight: 81.6475 kg

DRUGS (1)
  1. MIRAPEX [Suspect]
     Dosage: ONE PILL EACH NIGHT PO
     Route: 048

REACTIONS (2)
  - INSOMNIA [None]
  - PAIN [None]
